FAERS Safety Report 5678711-X (Version None)
Quarter: 2008Q1

REPORT INFORMATION
  Report Type: 
  Country: None (occurrence: None)
  Receive Date: 20080324
  Receipt Date: 20080324
  Transmission Date: 20080703
  Serious: No
  Sender: FDA-Public Use
  Company Number: None

PATIENT

DRUGS (2)
  1. NIFURTIMOX 120 MG TABLETS BAYER [Suspect]
     Indication: NEUROBLASTOMA
     Dosage: 30MG/KG/DAY PO
     Route: 048
  2. PROPOFOL [Suspect]
     Indication: SEDATIVE THERAPY
     Dosage: IV
     Route: 042

REACTIONS (3)
  - ASTHENIA [None]
  - DYSARTHRIA [None]
  - NEUROTOXICITY [None]
